FAERS Safety Report 5146185-3 (Version None)
Quarter: 2006Q4

REPORT INFORMATION
  Report Type: 
  Country: None (occurrence: None)
  Receive Date: 20061108
  Receipt Date: 20060602
  Transmission Date: 20070319
  Serious: Yes (Life-Threatening, Hospitalization, Other)
  Sender: FDA-Public Use
  Company Number: PHNU2006DE02204

PATIENT
  Age: 47 Year
  Sex: Male

DRUGS (29)
  1. TEGRETOL [Suspect]
     Dosage: 1000 MG/DAY
     Route: 048
     Dates: start: 19890901
  2. TEGRETOL [Suspect]
     Dosage: 1200 MG/DAY
     Route: 048
     Dates: start: 19900721
  3. DOGMATIL FORTE [Concomitant]
     Route: 048
     Dates: start: 19910101
  4. CARDIAC STIMULANTS [Suspect]
     Dates: start: 19901006
  5. VALPROATE SODIUM [Concomitant]
     Dates: start: 19830101
  6. VALPROATE SODIUM [Concomitant]
     Dosage: 1200 MG/DAY
     Dates: start: 19851029
  7. PRIMIDONE [Concomitant]
     Dates: start: 19830101
  8. PRIMIDONE [Concomitant]
     Dosage: 0.5 TABLET/DAY
     Route: 048
     Dates: start: 19851029
  9. ERGENYL ^SANOFI-SYNTHELABO^ [Concomitant]
     Dosage: UNK, UNK
  10. ERGENYL ^SANOFI-SYNTHELABO^ [Concomitant]
     Dosage: 1800 MG/DAY
  11. PHENYTOIN [Concomitant]
  12. NEUROCIL [Concomitant]
     Dosage: 3X30 DROPS/DAY
     Dates: start: 19851029
  13. ESBERITOX N [Concomitant]
  14. HALOPERIDOL DECANOATE [Concomitant]
     Dosage: 1 ML I.M.
  15. HALOPERIDOL DECANOATE [Concomitant]
  16. TIMONIL [Suspect]
     Dosage: UNK, UNK
  17. IMAP [Concomitant]
  18. LUMINAL [Concomitant]
  19. EUNERPAN [Concomitant]
     Dosage: 4X100 MG/DAY
  20. TEGRETOL [Suspect]
     Indication: CONVULSION
     Dosage: 900 MG/DAY
     Route: 048
     Dates: start: 19870115
  21. TEGRETOL [Suspect]
     Dosage: 900 MG/DAY
     Route: 048
     Dates: start: 19870119
  22. TEGRETOL [Suspect]
     Dosage: 1800 MG/DAY
     Route: 048
     Dates: start: 19870203
  23. TEGRETOL [Suspect]
     Dosage: 400 MG, BID
     Route: 048
     Dates: start: 19910101
  24. TEGRETOL [Suspect]
     Route: 048
  25. TEGRETOL [Suspect]
     Dosage: 1-0-1.5 TAB/DAY
     Route: 048
     Dates: start: 19850101
  26. TEGRETOL [Suspect]
     Dosage: 800 MG/DAY
     Route: 048
     Dates: start: 19850101
  27. TEGRETOL [Suspect]
     Dosage: 400 MG/DAY
     Route: 048
  28. TEGRETOL [Suspect]
     Dosage: 800 MG/DAY
     Route: 048
  29. TEGRETOL [Suspect]
     Dosage: 400-400-400 MG/DAY
     Route: 048
     Dates: start: 19900701, end: 19901006

REACTIONS (48)
  - ABNORMAL BEHAVIOUR [None]
  - AGGRESSION [None]
  - AGITATION [None]
  - ALCOHOL USE [None]
  - ANXIETY [None]
  - APATHY [None]
  - BLOOD PRESSURE IMMEASURABLE [None]
  - CARDIAC ARREST [None]
  - CARDIAC DISORDER [None]
  - CARDIO-RESPIRATORY ARREST [None]
  - COMA [None]
  - CYANOSIS [None]
  - DEPRESSED LEVEL OF CONSCIOUSNESS [None]
  - DISSOCIATION [None]
  - DISTURBANCE IN ATTENTION [None]
  - DRUG INTOLERANCE [None]
  - DYSPNOEA [None]
  - DYSTHYMIC DISORDER [None]
  - EROSIVE OESOPHAGITIS [None]
  - GENERAL PHYSICAL HEALTH DETERIORATION [None]
  - GRAND MAL CONVULSION [None]
  - HAEMORRHAGE [None]
  - HALLUCINATION, AUDITORY [None]
  - HALLUCINATIONS, MIXED [None]
  - HYPOMANIA [None]
  - IMPULSE-CONTROL DISORDER [None]
  - INTENTIONAL SELF-INJURY [None]
  - IRRITABILITY [None]
  - JAW FRACTURE [None]
  - LEUKOPENIA [None]
  - MEMORY IMPAIRMENT [None]
  - MOOD SWINGS [None]
  - MYDRIASIS [None]
  - MYOCLONIC EPILEPSY [None]
  - OESOPHAGEAL ULCER HAEMORRHAGE [None]
  - OESOPHAGITIS [None]
  - OVERDOSE [None]
  - PARANOIA [None]
  - PERSONALITY DISORDER [None]
  - PSYCHOTIC DISORDER [None]
  - PULSE ABSENT [None]
  - RESPIRATORY ARREST [None]
  - SELF MUTILATION [None]
  - SOMNOLENCE [None]
  - THINKING ABNORMAL [None]
  - TREATMENT NONCOMPLIANCE [None]
  - VOMITING [None]
  - WHITE BLOOD CELL COUNT DECREASED [None]
